FAERS Safety Report 7517232-6 (Version None)
Quarter: 2011Q2

REPORT INFORMATION
  Report Type: 
  Country: None (occurrence: None)
  Receive Date: 20110601
  Receipt Date: 20101229
  Transmission Date: 20111010
  Serious: Yes (Other)
  Sender: FDA-Public Use
  Company Number: CO-GENENTECH-311902

PATIENT
  Sex: Female

DRUGS (1)
  1. PULMOZYME [Suspect]
     Indication: CYSTIC FIBROSIS
     Dosage: 2.5 ML, QD
     Route: 055
     Dates: start: 20071130

REACTIONS (1)
  - ABDOMINAL PAIN [None]
